FAERS Safety Report 4981782-7 (Version None)
Quarter: 2006Q2

REPORT INFORMATION
  Report Type: 
  Country: None (occurrence: None)
  Receive Date: 20060425
  Receipt Date: 20060407
  Transmission Date: 20061013
  Serious: Yes (Hospitalization)
  Sender: FDA-Public Use
  Company Number: US-GLAXOSMITHKLINE-A0600926A

PATIENT
  Age: 40 Year
  Sex: Male

DRUGS (3)
  1. REQUIP [Suspect]
     Indication: RESTLESS LEGS SYNDROME
     Route: 048
     Dates: end: 20060101
  2. LEXAPRO [Suspect]
     Indication: DEPRESSION
     Dates: end: 20060101
  3. NO CONCURRENT MEDICATION [Concomitant]

REACTIONS (4)
  - HEPATIC STEATOSIS [None]
  - PAIN [None]
  - PANCREATITIS [None]
  - SEPSIS [None]
